FAERS Safety Report 5144202-8 (Version None)
Quarter: 2006Q4

REPORT INFORMATION
  Report Type: 
  Country: None (occurrence: None)
  Receive Date: 20061102
  Receipt Date: 20061102
  Transmission Date: 20070319
  Serious: Yes (Life-Threatening, Hospitalization, Other)
  Sender: FDA-Public Use
  Company Number: None

PATIENT
  Sex: Female
  Weight: 52.1637 kg

DRUGS (2)
  1. LAMICTAL [Suspect]
     Indication: CONVULSION
     Dosage: MANUFACTURER BLISTER PAK  INCREASED DOSAGE   PO
     Route: 048
     Dates: start: 20060421, end: 20060505
  2. LAMICTAL [Suspect]
     Indication: DRUG THERAPY CHANGED
     Dosage: MANUFACTURER BLISTER PAK  INCREASED DOSAGE   PO
     Route: 048
     Dates: start: 20060421, end: 20060505

REACTIONS (9)
  - BRONCHITIS CHRONIC [None]
  - ORAL INTAKE REDUCED [None]
  - SCAR [None]
  - SKIN DISCOLOURATION [None]
  - STAPHYLOCOCCAL INFECTION [None]
  - STEVENS-JOHNSON SYNDROME [None]
  - TEMPERATURE INTOLERANCE [None]
  - TOXIC EPIDERMAL NECROLYSIS [None]
  - VISION BLURRED [None]
